FAERS Safety Report 19114280 (Version 2)
Quarter: 2021Q2

REPORT INFORMATION
  Report Type: Spontaneous
  Country: JP (occurrence: JP)
  Receive Date: 20210409
  Receipt Date: 20210616
  Transmission Date: 20210717
  Serious: Yes (Hospitalization)
  Sender: FDA-Public Use
  Company Number: JP-ROCHE-2805011

PATIENT
  Age: 73 Year
  Sex: Male
  Weight: 65.3 kg

DRUGS (2)
  1. AVASTIN [Suspect]
     Active Substance: BEVACIZUMAB
     Indication: HEPATOCELLULAR CARCINOMA
     Dosage: RECENT DOSE ON 25/JAN/2021
     Route: 041
     Dates: start: 20201022
  2. TECENTRIQ [Suspect]
     Active Substance: ATEZOLIZUMAB
     Indication: HEPATOCELLULAR CARCINOMA
     Dosage: RECENT DOSE ON 25/JAN/2021
     Route: 041
     Dates: start: 20201022

REACTIONS (2)
  - Acute kidney injury [Recovering/Resolving]
  - Hypothyroidism [Recovering/Resolving]

NARRATIVE: CASE EVENT DATE: 20210125
